FAERS Safety Report 7866062 (Version 3)
Quarter: 2013Q3

REPORT INFORMATION
  Report Type: Spontaneous
  Country: US (occurrence: US)
  Receive Date: 20110322
  Receipt Date: 20130702
  Transmission Date: 20140515
  Serious: Yes (Other)
  Sender: FDA-Public Use
  Company Number: US-ROCHE-765206

PATIENT
  Age: 24 Year
  Sex: Female

DRUGS (3)
  1. BEVACIZUMAB [Suspect]
     Indication: GLIOBLASTOMA MULTIFORME
     Route: 065
  2. IRINOTECAN [Concomitant]
     Indication: GLIOBLASTOMA MULTIFORME
  3. TEMOZOLOMIDE [Concomitant]
     Indication: GLIOBLASTOMA MULTIFORME

REACTIONS (1)
  - Optic neuropathy [Recovering/Resolving]
